FAERS Safety Report 23335081 (Version 1)
Quarter: 2023Q4

REPORT INFORMATION
  Report Type: Other
  Country: US (occurrence: None)
  Receive Date: 20231225
  Receipt Date: 20231225
  Transmission Date: 20240109
  Serious: Yes (Other)
  Sender: FDA-Public Use
  Company Number: US-ROCHE-3478751

PATIENT

DRUGS (1)
  1. MYCOPHENOLATE MOFETIL [Suspect]
     Active Substance: MYCOPHENOLATE MOFETIL
     Indication: Glioblastoma
     Dosage: 500-2000 MG
     Route: 048

REACTIONS (5)
  - Hemiparesis [Unknown]
  - Thrombocytopenia [Unknown]
  - Cognitive disorder [Unknown]
  - Nausea [Unknown]
  - Fatigue [Unknown]
